FAERS Safety Report 9991090 (Version 1)
Quarter: 2014Q1

REPORT INFORMATION
  Report Type: Spontaneous
  Country: US (occurrence: US)
  Receive Date: 20140310
  Receipt Date: 20140310
  Transmission Date: 20141002
  Serious: No
  Sender: FDA-Public Use
  Company Number: US-ABBVIE-13P-163-1135799-00

PATIENT
  Age: 26 Year
  Sex: Male
  Weight: 72.2 kg

DRUGS (4)
  1. HUMIRA [Suspect]
     Indication: COLITIS ULCERATIVE
     Dates: start: 201212, end: 201212
  2. HUMIRA [Suspect]
     Indication: CHOLANGITIS SCLEROSING
     Dates: start: 201212, end: 201212
  3. HUMIRA [Suspect]
     Dates: start: 201301
  4. URSODIOL [Concomitant]
     Indication: CHOLANGITIS SCLEROSING

REACTIONS (4)
  - Off label use [Not Recovered/Not Resolved]
  - Injection site warmth [Not Recovered/Not Resolved]
  - Injection site erythema [Not Recovered/Not Resolved]
  - Injection site pain [Not Recovered/Not Resolved]
